FAERS Safety Report 7452698-1 (Version None)
Quarter: 2011Q2

REPORT INFORMATION
  Report Type: 
  Country: None (occurrence: None)
  Receive Date: 20110502
  Receipt Date: 20101201
  Transmission Date: 20111010
  Serious: No
  Sender: FDA-Public Use
  Company Number: US-ASTRAZENECA-2010SE52237

PATIENT
  Sex: Female

DRUGS (3)
  1. NEXIUM [Suspect]
     Indication: EROSIVE OESOPHAGITIS
     Route: 048
  2. NEXIUM [Suspect]
     Dosage: TWO TIMES PER DAY
     Route: 048
  3. NEXIUM [Suspect]
     Dosage: TOTAL DAILY DOSE 80MG, TWO TIMES A DAY
     Route: 048

REACTIONS (3)
  - DRUG DOSE OMISSION [None]
  - ENDOSCOPY UPPER GASTROINTESTINAL TRACT ABNORMAL [None]
  - PNEUMONIA [None]
